FAERS Safety Report 4754850-2 (Version None)
Quarter: 2005Q3

REPORT INFORMATION
  Report Type: 
  Country: None (occurrence: None)
  Receive Date: 20050829
  Receipt Date: 20050211
  Transmission Date: 20060218
  Serious: Yes (Hospitalization)
  Sender: FDA-Public Use
  Company Number: US-MERCK-0502USA01617

PATIENT
  Age: 55 Year
  Sex: Male
  Weight: 98 kg

DRUGS (8)
  1. VIOXX [Suspect]
     Indication: ARTHRALGIA
     Route: 048
     Dates: start: 20010727
  2. VIOXX [Suspect]
     Route: 048
     Dates: start: 20020515, end: 20030602
  3. VIOXX [Suspect]
     Route: 048
     Dates: start: 20030630, end: 20030701
  4. VICODIN [Concomitant]
     Indication: PAIN
     Route: 065
  5. PEPCID [Concomitant]
     Route: 065
  6. ASPIRIN [Concomitant]
     Indication: CEREBROVASCULAR ACCIDENT PROPHYLAXIS
     Route: 065
     Dates: start: 20010101
  7. [THERAPY UNSPECIFIED] [Concomitant]
     Indication: PAIN
     Route: 065
     Dates: start: 19920101, end: 20050101
  8. ZOCOR [Concomitant]
     Route: 048

REACTIONS (18)
  - ANGINA PECTORIS [None]
  - CARDIAC MURMUR [None]
  - CARDIAC VALVE DISEASE [None]
  - CEREBROVASCULAR ACCIDENT [None]
  - CHEST PAIN [None]
  - CORONARY ARTERY DISEASE [None]
  - DYSPEPSIA [None]
  - DYSPNOEA EXERTIONAL [None]
  - DYSPNOEA PAROXYSMAL NOCTURNAL [None]
  - EPIGASTRIC DISCOMFORT [None]
  - HAEMOPTYSIS [None]
  - HYPERCHOLESTEROLAEMIA [None]
  - HYPERTENSION [None]
  - HYPERTROPHIC OBSTRUCTIVE CARDIOMYOPATHY [None]
  - MELAENA [None]
  - ORTHOSTATIC HYPOTENSION [None]
  - THROMBOTIC STROKE [None]
  - TRANSIENT ISCHAEMIC ATTACK [None]
